FAERS Safety Report 17822675 (Version 2)
Quarter: 2020Q4

REPORT INFORMATION
  Report Type: Spontaneous
  Country: US (occurrence: US)
  Receive Date: 20200526
  Receipt Date: 20201117
  Transmission Date: 20210113
  Serious: Yes (Other)
  Sender: FDA-Public Use
  Company Number: US-ASTRAZENECA-2020SE67304

PATIENT
  Age: 29416 Day
  Sex: Female
  Weight: 70.3 kg

DRUGS (44)
  1. METOPROLOL. [Concomitant]
     Active Substance: METOPROLOL
     Indication: BLOOD PRESSURE ABNORMAL
     Dates: start: 2018
  2. MAALOX ANTACID [Concomitant]
     Active Substance: ALUMINUM HYDROXIDE\DIMETHICONE\MAGNESIUM HYDROXIDE
     Dates: end: 2010
  3. FELODIPINE. [Concomitant]
     Active Substance: FELODIPINE
     Dates: start: 20100221
  4. OXYCODONE AND ACETAMINOPHEN [Concomitant]
     Active Substance: ACETAMINOPHEN\OXYCODONE HYDROCHLORIDE
     Dates: start: 20100228
  5. SILVER SULFADIAZINE. [Concomitant]
     Active Substance: SILVER SULFADIAZINE
     Dates: start: 20100302
  6. CILOSTAZOL. [Concomitant]
     Active Substance: CILOSTAZOL
  7. VOLTAREN [Concomitant]
     Active Substance: DICLOFENAC SODIUM
  8. CLOBETASOL [Concomitant]
     Active Substance: CLOBETASOL
     Dates: start: 20120403
  9. VITAMIN D [Concomitant]
     Active Substance: VITAMIN D NOS
     Dates: start: 2015
  10. ALKA-SELTZER [Concomitant]
     Active Substance: ANHYDROUS CITRIC ACID\ASPIRIN\SODIUM BICARBONATE
     Dates: end: 2010
  11. NEXIUM [Suspect]
     Active Substance: ESOMEPRAZOLE MAGNESIUM
     Indication: GASTROOESOPHAGEAL REFLUX DISEASE
     Dosage: CAPSULE40.0MG UNKNOWN
     Route: 048
     Dates: start: 20100912
  12. ELIQUIS [Concomitant]
     Active Substance: APIXABAN
     Indication: ANTICOAGULANT THERAPY
     Dates: start: 2010
  13. GABAPENTIN. [Concomitant]
     Active Substance: GABAPENTIN
     Indication: PAIN
     Dates: start: 2016
  14. FELODIPINE. [Concomitant]
     Active Substance: FELODIPINE
     Indication: HYPERTENSION
     Dates: start: 2010
  15. VITAMIN B12 [Concomitant]
     Active Substance: CYANOCOBALAMIN
     Dates: start: 2015
  16. CIPROFLOXACIN. [Concomitant]
     Active Substance: CIPROFLOXACIN
     Dates: start: 20110202
  17. NEXIUM [Suspect]
     Active Substance: ESOMEPRAZOLE MAGNESIUM
     Indication: GASTROOESOPHAGEAL REFLUX DISEASE
     Route: 048
     Dates: start: 2010, end: 201603
  18. NEXIUM [Suspect]
     Active Substance: ESOMEPRAZOLE MAGNESIUM
     Indication: GASTROOESOPHAGEAL REFLUX DISEASE
     Dosage: 40.0MG UNKNOWN
     Route: 048
     Dates: start: 2010, end: 201603
  19. PREVACID [Suspect]
     Active Substance: LANSOPRAZOLE
     Indication: GASTROOESOPHAGEAL REFLUX DISEASE
     Route: 065
     Dates: end: 2010
  20. BIOTIN [Concomitant]
     Active Substance: BIOTIN
     Dates: start: 2015
  21. TUMS [Concomitant]
     Active Substance: CALCIUM CARBONATE
     Dates: end: 2010
  22. OMEPRAZOLE. [Suspect]
     Active Substance: OMEPRAZOLE
     Indication: GASTROOESOPHAGEAL REFLUX DISEASE
     Dosage: GENERIC
     Route: 065
     Dates: start: 2010, end: 2012
  23. TELMISARTAN. [Concomitant]
     Active Substance: TELMISARTAN
     Indication: HYPERTENSION
     Dates: start: 2019
  24. LUTEIN [Concomitant]
     Active Substance: LUTEIN
     Dates: start: 2015
  25. ZANTAC [Concomitant]
     Active Substance: RANITIDINE HYDROCHLORIDE
     Dosage: OTC
  26. TYLENOL [Concomitant]
     Active Substance: ACETAMINOPHEN
  27. HYDROCHLOROTHIAZIDE. [Concomitant]
     Active Substance: HYDROCHLOROTHIAZIDE
     Dates: start: 20100217
  28. ENALAPRIL [Concomitant]
     Active Substance: ENALAPRIL
     Dates: start: 20100228
  29. NEXIUM [Suspect]
     Active Substance: ESOMEPRAZOLE MAGNESIUM
     Indication: GASTROOESOPHAGEAL REFLUX DISEASE
     Dosage: 20.0MG UNKNOWN
     Route: 048
     Dates: start: 2010, end: 201603
  30. MILK OF MAGNESIA [Concomitant]
     Active Substance: MAGNESIUM HYDROXIDE
     Dates: end: 2010
  31. NAPROXEN. [Concomitant]
     Active Substance: NAPROXEN
     Dates: start: 20100228
  32. METHOCARBAMOL. [Concomitant]
     Active Substance: METHOCARBAMOL
     Dates: start: 20100316
  33. CLOTRIMAZOLE AND BETAMETHASONE DIPROPIONATE [Concomitant]
     Active Substance: BETAMETHASONE\BETAMETHASONE DIPROPIONATE\CLOTRIMAZOLE
     Dates: start: 20100604
  34. TRAMADOL. [Concomitant]
     Active Substance: TRAMADOL
     Dates: start: 20100604
  35. PIROXICAM. [Concomitant]
     Active Substance: PIROXICAM
     Dates: start: 20100611
  36. CYCLOBENZAPRINE. [Concomitant]
     Active Substance: CYCLOBENZAPRINE
     Dates: start: 20100611
  37. SIMVASTATIN. [Concomitant]
     Active Substance: SIMVASTATIN
     Dates: start: 20101028
  38. OMEPRAZOLE. [Suspect]
     Active Substance: OMEPRAZOLE
     Indication: GASTROOESOPHAGEAL REFLUX DISEASE
     Dosage: GENERIC CAPSULE40.0MG UNKNOWN
     Route: 065
     Dates: start: 20121224
  39. PREVACID 24 HR [Suspect]
     Active Substance: LANSOPRAZOLE
     Route: 065
  40. LOSARTAN. [Concomitant]
     Active Substance: LOSARTAN
     Indication: HYPERTENSION
     Dates: start: 2012, end: 2019
  41. FOLIC ACID. [Concomitant]
     Active Substance: FOLIC ACID
     Dates: start: 2015
  42. OMEGA 3 ACID [Concomitant]
     Dates: start: 2015
  43. ASPIRIN. [Concomitant]
     Active Substance: ASPIRIN
  44. IBUPROFEN. [Concomitant]
     Active Substance: IBUPROFEN
     Dates: start: 20110202

REACTIONS (2)
  - Chronic kidney disease [Not Recovered/Not Resolved]
  - Nephrogenic anaemia [Unknown]

NARRATIVE: CASE EVENT DATE: 20160307
